FAERS Safety Report 22208746 (Version 1)
Quarter: 2023Q2

REPORT INFORMATION
  Report Type: Spontaneous
  Country: PL (occurrence: PL)
  Receive Date: 20230413
  Receipt Date: 20230413
  Transmission Date: 20230721
  Serious: Yes (Life-Threatening, Hospitalization, Other)
  Sender: FDA-Public Use
  Company Number: PL-CELGENE-POL-20210904434

PATIENT
  Age: 73 Year
  Sex: Male
  Weight: 86 kg

DRUGS (15)
  1. AZACITIDINE [Suspect]
     Active Substance: AZACITIDINE
     Indication: Myelodysplastic syndrome
     Dosage: 74.61 MILLIGRAM/SQ. METER
     Route: 058
     Dates: start: 20201216, end: 20210126
  2. AZACITIDINE [Suspect]
     Active Substance: AZACITIDINE
     Dosage: 7DAYS WITHIN FIRST 9 CALENDAR DAYS
     Route: 058
     Dates: start: 20210823
  3. VENETOCLAX [Suspect]
     Active Substance: VENETOCLAX
     Indication: Product used for unknown indication
     Dosage: FREQUENCY TEXT: NOT PROVIDED
     Route: 048
  4. RAMIPRIL [Concomitant]
     Active Substance: RAMIPRIL
     Indication: Coronary artery disease
     Dosage: 5 MILLIGRAM
     Route: 048
     Dates: start: 2017
  5. BIOSOTAL [Concomitant]
     Indication: Coronary artery disease
     Dosage: 40 MILLIGRAM
     Route: 048
     Dates: start: 2017
  6. ONDANSETRON [Concomitant]
     Active Substance: ONDANSETRON
     Indication: Prophylaxis of nausea and vomiting
     Dosage: 16 MILLIGRAM
     Route: 048
     Dates: start: 20201216
  7. PREDNISONE [Concomitant]
     Active Substance: PREDNISONE
     Indication: Acute febrile neutrophilic dermatosis
     Dosage: 10 MILLIGRAM
     Route: 048
     Dates: start: 20201231
  8. OMEPRAZOLE SODIUM [Concomitant]
     Active Substance: OMEPRAZOLE SODIUM
     Indication: Prophylaxis against gastrointestinal ulcer
     Dosage: 20 MILLIGRAM
     Route: 048
     Dates: start: 20201231
  9. RAMIPRIL [Concomitant]
     Active Substance: RAMIPRIL
     Indication: Hypertension
     Dosage: 5 MILLIGRAM
     Route: 048
     Dates: start: 20201231
  10. ACARD [Concomitant]
     Indication: Coronary artery disease
     Dosage: 75 MILLIGRAM
     Route: 048
     Dates: start: 20210107
  11. VITAMIN D [Concomitant]
     Active Substance: VITAMIN D NOS
     Indication: Osteoporosis prophylaxis
     Dosage: 500 IU (INTERNATIONAL UNIT)
     Route: 048
     Dates: start: 20201231
  12. ASMAG [Concomitant]
     Indication: Prophylaxis
     Dosage: 1000 MILLIGRAM
     Route: 048
     Dates: start: 20200102
  13. POTASSIUM CHLORIDE [Concomitant]
     Active Substance: POTASSIUM CHLORIDE
     Indication: Prophylaxis
     Dosage: 1250 MILLIGRAM
     Route: 048
     Dates: start: 20200107
  14. CALPEROS [Concomitant]
     Indication: Osteoporosis prophylaxis
     Dosage: 1000 MILLIGRAM
     Route: 048
     Dates: start: 20210111
  15. TELMISARTAN [Concomitant]
     Active Substance: TELMISARTAN
     Indication: Hypertension
     Dosage: 40 MILLIGRAM
     Route: 048
     Dates: start: 20210318

REACTIONS (1)
  - Acute myocardial infarction [Recovered/Resolved]

NARRATIVE: CASE EVENT DATE: 20210911
